FAERS Safety Report 8542478-8 (Version None)
Quarter: 2012Q3

REPORT INFORMATION
  Report Type: 
  Country: None (occurrence: None)
  Receive Date: 20120726
  Receipt Date: 20110720
  Transmission Date: 20120928
  Serious: Yes (Hospitalization, Other)
  Sender: FDA-Public Use
  Company Number: US-ASTRAZENECA-2009UW00601

PATIENT
  Age: 424 Month
  Sex: Male
  Weight: 104.3 kg

DRUGS (12)
  1. SEROQUEL [Suspect]
     Indication: AGITATION
     Dosage: AS NEEDED
     Route: 048
     Dates: start: 20031001
  2. SEROQUEL [Suspect]
     Dosage: 200 MG/300 MG
     Route: 048
     Dates: start: 20030101, end: 20060101
  3. TRAZODONE HYDROCHLORIDE [Concomitant]
     Dates: start: 20030101, end: 20040101
  4. SEROQUEL [Suspect]
     Indication: DEPRESSION
     Dosage: AS NEEDED
     Route: 048
     Dates: start: 20031001
  5. BENTYL [Concomitant]
     Indication: ABDOMINAL PAIN
     Dosage: PRN
     Route: 048
     Dates: start: 20031001
  6. SEROQUEL [Suspect]
     Indication: BIPOLAR DISORDER
     Dosage: AS NEEDED
     Route: 048
     Dates: start: 20031001
  7. SEROQUEL [Suspect]
     Dosage: 200 MG/300 MG
     Route: 048
     Dates: start: 20030101, end: 20060101
  8. ACETAMINOPHEN [Concomitant]
     Indication: PAIN
     Dosage: 325 MG 2 TAB EVERY 4 HOURS
     Route: 048
     Dates: start: 20031001
  9. RISPERDAL [Concomitant]
     Dosage: 0.25 TO 1 MG
     Dates: start: 20030101
  10. SUDAFED S.A. [Concomitant]
     Indication: SINUS CONGESTION
     Dosage: 1 PO Q 4HRS PRN
     Route: 048
     Dates: start: 20031001
  11. TRAZODONE HYDROCHLORIDE [Concomitant]
     Indication: INSOMNIA
     Dosage: PRN
     Route: 048
     Dates: start: 20031001
  12. SEROQUEL [Suspect]
     Dosage: 200 MG/300 MG
     Route: 048
     Dates: start: 20030101, end: 20060101

REACTIONS (3)
  - SUICIDE ATTEMPT [None]
  - DIABETIC KETOACIDOSIS [None]
  - TYPE 2 DIABETES MELLITUS [None]
